FAERS Safety Report 15168687 (Version 3)
Quarter: 2018Q3

REPORT INFORMATION
  Report Type: Report from Study
  Country: None (occurrence: RO)
  Receive Date: 20180720
  Receipt Date: 20180821
  Transmission Date: 20181010
  Serious: Yes (Death, Hospitalization, Other)
  Sender: FDA-Public Use
  Company Number: RO-ABBVIE-18S-135-2421432-00

PATIENT
  Age: 70 Year
  Sex: Male

DRUGS (1)
  1. DUODOPA [Suspect]
     Active Substance: CARBIDOPA\LEVODOPA
     Indication: PARKINSON^S DISEASE
     Dosage: DM=15.40, DC=5.80, ED=2.50, NRED=0;
     Route: 050
     Dates: start: 20180320, end: 20180812

REACTIONS (7)
  - Renal neoplasm [Not Recovered/Not Resolved]
  - Clostridium difficile colitis [Recovering/Resolving]
  - Diarrhoea [Fatal]
  - Anuria [Unknown]
  - Oedema peripheral [Unknown]
  - Cardiopulmonary failure [Fatal]
  - Delirium [Unknown]

NARRATIVE: CASE EVENT DATE: 20180714
